FAERS Safety Report 13314180 (Version 1)
Quarter: 2017Q1

REPORT INFORMATION
  Report Type: Spontaneous
  Country: US (occurrence: US)
  Receive Date: 20170309
  Receipt Date: 20170309
  Transmission Date: 20170428
  Serious: No
  Sender: FDA-Public Use
  Company Number: US-TURING PHARMACEUTICALS-2016TNG00036

PATIENT
  Sex: Female

DRUGS (5)
  1. SULFADIAZINE. [Concomitant]
     Active Substance: SULFADIAZINE
     Dosage: 1 G, 4X/DAY
  2. PYRIMETHAMINE [Concomitant]
     Active Substance: PYRIMETHAMINE
     Dosage: 25 MG, UNK
  3. LEUCOVORIN. [Concomitant]
     Active Substance: LEUCOVORIN
     Dosage: 5 MG, EVERY 48 HOURS
  4. DARAPRIM [Suspect]
     Active Substance: PYRIMETHAMINE
     Indication: EYE INFECTION TOXOPLASMAL
     Dosage: 25 MG, 3X/DAY
     Route: 048
     Dates: start: 20160726, end: 20160731
  5. PYRIMETHAMINE [Concomitant]
     Active Substance: PYRIMETHAMINE
     Dosage: 75 MG, FOR 3 DAYS

REACTIONS (8)
  - Dizziness [Unknown]
  - Vomiting [Recovered/Resolved]
  - Hepatic pain [Unknown]
  - Renal pain [Unknown]
  - Asthenia [Unknown]
  - Headache [Unknown]
  - Palpitations [Unknown]
  - Nausea [Recovered/Resolved]

NARRATIVE: CASE EVENT DATE: 2016
